FAERS Safety Report 8796857 (Version 1)
Quarter: 2012Q4

REPORT INFORMATION
  Report Type: 
  Country: US (occurrence: US)
  Receive Date: 20120919
  Receipt Date: 20120919
  Transmission Date: 20130627
  Serious: No
  Sender: FDA-Public Use
  Company Number: US-ASTRAZENECA-2012SE71531

PATIENT
  Sex: Female

DRUGS (4)
  1. SYMBICORT PMDI [Suspect]
     Route: 055
  2. ADVAIR [Suspect]
     Route: 065
  3. SPIRIVA [Suspect]
     Route: 065
  4. XOPENEX [Suspect]
     Route: 065

REACTIONS (2)
  - Herpes zoster [Unknown]
  - Adverse event [Unknown]
